FAERS Safety Report 18117561 (Version 1)
Quarter: 2020Q3

REPORT INFORMATION
  Report Type: Spontaneous
  Country: NL (occurrence: NL)
  Receive Date: 20200806
  Receipt Date: 20200806
  Transmission Date: 20201103
  Serious: Yes (Hospitalization)
  Sender: FDA-Public Use
  Company Number: NL-TEVA-2020-NL-1809457

PATIENT
  Age: 73 Year
  Sex: Female
  Weight: 65 kg

DRUGS (5)
  1. HYDROXOCOBALAMINE INJVLST  500UG/ML / BRAND NAME NOT SPECIFIED [Concomitant]
     Dosage: 500 UG/ML (MICROGRAM PER MILLILITER),THERAPY START DATE: ASKU ,THERAPY END DATE: ASKU
  2. PEMETREXED INFUUS / BRAND NAME NOT SPECIFIED [Suspect]
     Active Substance: PEMETREXED
     Indication: LUNG NEOPLASM MALIGNANT
     Dosage: 850 MG
     Dates: start: 20200709, end: 20200709
  3. FOLIUMZUUR TABLET 0,5MG / BRAND NAME NOT SPECIFIED [Concomitant]
     Dosage: 0.5 MG (MILLIGRAM),THERAPY START DATE: ASKU ,THERAPY END DATE: ASKU
  4. IPRATROPIUM AEROSOL 20UG/DO / BRAND NAME NOT SPECIFIED [Concomitant]
     Dosage: 20 G / DOSE (MICROGRAMS PER DOSE),THERAPY START DATE:ASKU ,THERAPY END DATE: ASKU ,
  5. CARBOPLATINE INFUUS / BRAND NAME NOT SPECIFIED [Suspect]
     Active Substance: CARBOPLATIN
     Indication: LUNG NEOPLASM MALIGNANT
     Dosage: 509 MG
     Dates: start: 20200709, end: 20200709

REACTIONS (1)
  - Acute myocardial infarction [Recovering/Resolving]

NARRATIVE: CASE EVENT DATE: 20200711
